FAERS Safety Report 12182939 (Version 1)
Quarter: 2016Q1

REPORT INFORMATION
  Report Type: Spontaneous
  Country: US (occurrence: None)
  Receive Date: 20160315
  Receipt Date: 20160315
  Transmission Date: 20160526
  Serious: Yes (Disabling, Other)
  Sender: FDA-Public Use
  Company Number: None

PATIENT
  Age: 56 Year
  Sex: Male
  Weight: 88.45 kg

DRUGS (3)
  1. TRIMIX [Suspect]
     Active Substance: ALPROSTADIL\PAPAVERINE\PHENTOLAMINE
     Indication: ERECTILE DYSFUNCTION
     Dosage: 20 MCG, AS NEEDED, GIVEN INTO/UNDER THE SKIN
     Dates: start: 20160301, end: 20160301
  2. MULTI VITAMIN [Concomitant]
     Active Substance: VITAMINS
  3. FISH OIL [Concomitant]
     Active Substance: FISH OIL

REACTIONS (3)
  - Injection site irritation [None]
  - Injection site pain [None]
  - Liquid product physical issue [None]

NARRATIVE: CASE EVENT DATE: 20160314
